FAERS Safety Report 4851823-6 (Version None)
Quarter: 2005Q4

REPORT INFORMATION
  Report Type: 
  Country: None (occurrence: None)
  Receive Date: 20051209
  Receipt Date: 20051123
  Transmission Date: 20060501
  Serious: Yes (Hospitalization)
  Sender: FDA-Public Use
  Company Number: 220120

PATIENT
  Age: 72 Year
  Sex: Female

DRUGS (7)
  1. HERCEPTIN [Suspect]
     Dosage: 236 MG, QD,; 118 MG, QD,
     Dates: start: 20030514, end: 20030618
  2. HERCEPTIN [Suspect]
     Dosage: 236 MG, QD,; 118 MG, QD,
     Dates: start: 20030507
  3. DOCETAXEL (DOCETAXEL) [Suspect]
     Dosage: 56 MG, ORAL
     Route: 048
     Dates: start: 20030507, end: 20030521
  4. EVISTA [Concomitant]
  5. LOSEC (OMEPRAZOLE) [Concomitant]
  6. PROZAC [Concomitant]
  7. CORDILOX               (VERAPAMIL HYDROCHLORIDE) [Concomitant]

REACTIONS (5)
  - CARDIAC FAILURE [None]
  - CARDIOMYOPATHY [None]
  - HYPERCALCAEMIA [None]
  - HYPERKALAEMIA [None]
  - HYPOMAGNESAEMIA [None]
